FAERS Safety Report 9041245 (Version 1)
Quarter: 2013Q1

REPORT INFORMATION
  Report Type: Report from Study
  Country: US (occurrence: US)
  Receive Date: 20130129
  Receipt Date: 20130129
  Transmission Date: 20140127
  Serious: No
  Sender: FDA-Public Use
  Company Number: US-ABBOTT-11P-163-0879976-00

PATIENT
  Sex: Female
  Weight: 65.83 kg

DRUGS (3)
  1. HUMIRA 40 MG/0.8 ML PEN [Suspect]
     Indication: CROHN^S DISEASE
     Dates: start: 201101
  2. VITAMIN D [Concomitant]
     Indication: VITAMIN SUPPLEMENTATION
  3. VITAMIN B12 [Concomitant]
     Indication: VITAMIN SUPPLEMENTATION

REACTIONS (7)
  - Psoriasis [Not Recovered/Not Resolved]
  - Injection site urticaria [Not Recovered/Not Resolved]
  - Injection site pain [Not Recovered/Not Resolved]
  - Psoriasis [Not Recovered/Not Resolved]
  - Bronchitis [Recovered/Resolved]
  - Dermatitis psoriasiform [Unknown]
  - Psoriasis [Unknown]
